FAERS Safety Report 7103176-0 (Version None)
Quarter: 2010Q4

REPORT INFORMATION
  Report Type: 
  Country: None (occurrence: None)
  Receive Date: 20101115
  Receipt Date: 20101103
  Transmission Date: 20110411
  Serious: Yes (Hospitalization)
  Sender: FDA-Public Use
  Company Number: US-MERCK-1011USA00535

PATIENT
  Age: 65 Year
  Sex: Female

DRUGS (7)
  1. PRINIVIL [Suspect]
     Indication: HYPERTENSION
     Route: 048
     Dates: start: 20020101, end: 20050101
  2. PRINIVIL [Suspect]
     Route: 048
     Dates: start: 20020101, end: 20050101
  3. PRINIVIL [Suspect]
     Route: 048
     Dates: start: 20050101
  4. HYDROCHLOROTHIAZIDE AND TRIAMTERENE [Concomitant]
     Route: 065
  5. ASPIRIN [Concomitant]
     Route: 065
  6. ALPRAZOLAM [Concomitant]
     Route: 065
  7. LOPRESSOR [Suspect]
     Route: 065

REACTIONS (5)
  - CYSTITIS [None]
  - DRUG INEFFECTIVE [None]
  - ESCHERICHIA INFECTION [None]
  - HYPERTENSION [None]
  - RENAL CELL CARCINOMA [None]
